FAERS Safety Report 5551297-6 (Version None)
Quarter: 2007Q4

REPORT INFORMATION
  Report Type: 
  Country: None (occurrence: None)
  Receive Date: 20071212
  Receipt Date: 20070525
  Transmission Date: 20080405
  Serious: No
  Sender: FDA-Public Use
  Company Number: US-AMGEN-KDL226342

PATIENT
  Sex: Female

DRUGS (15)
  1. ENBREL [Suspect]
     Indication: RHEUMATOID ARTHRITIS
     Route: 058
     Dates: start: 20070401
  2. METHOTREXATE [Concomitant]
  3. FOLIC ACID [Concomitant]
  4. CRESTOR [Concomitant]
  5. CELEBREX [Concomitant]
  6. DIOVAN [Concomitant]
  7. ZOLOFT [Concomitant]
  8. CYMBALTA [Concomitant]
  9. LANTUS [Concomitant]
  10. LEDERFOLIN [Concomitant]
  11. ACTONEL [Concomitant]
  12. PROPRANOLOL [Concomitant]
  13. BIAXIN [Concomitant]
  14. ASPIRIN [Concomitant]
  15. PLAVIX [Concomitant]

REACTIONS (1)
  - DRUG INEFFECTIVE [None]
